FAERS Safety Report 4895002-5 (Version None)
Quarter: 2006Q1

REPORT INFORMATION
  Report Type: 
  Country: None (occurrence: None)
  Receive Date: 20060130
  Receipt Date: 20050818
  Transmission Date: 20060701
  Serious: No
  Sender: FDA-Public Use
  Company Number: US-BRISTOL-MYERS SQUIBB COMPANY-13082672

PATIENT
  Sex: Male
  Weight: 77 kg

DRUGS (3)
  1. GLUCOPHAGE [Suspect]
     Dosage: 1000MG IN THE AM AND 500MG IN THE PM.
     Route: 048
     Dates: start: 20010401
  2. LOPRESSOR [Concomitant]
  3. ASPIRIN [Concomitant]

REACTIONS (2)
  - LOSS OF CONSCIOUSNESS [None]
  - MALAISE [None]
